FAERS Safety Report 15768215 (Version 4)
Quarter: 2019Q2

REPORT INFORMATION
  Report Type: Report from Study
  Country: US (occurrence: US)
  Receive Date: 20181227
  Receipt Date: 20190403
  Transmission Date: 20190711
  Serious: Yes (Death, Congenital Anomaly, Other)
  Sender: FDA-Public Use
  Company Number: US-GILEAD-2018-0381385

PATIENT
  Age: 9 Day
  Sex: Male
  Weight: 2.35 kg

DRUGS (5)
  1. EMTRICITABINE/TENOFOVIR DISOPROXIL FUMARATE [Suspect]
     Active Substance: EMTRICITABINE\TENOFOVIR DISOPROXIL FUMARATE
     Indication: HIV INFECTION
     Dosage: 1 DF
     Route: 064
     Dates: start: 20180511, end: 20180521
  2. EMTRICITABINE/RILPIVIRINE/TENOFOVIR DF [Suspect]
     Active Substance: EMTRICITABINE\RILPIVIRINE\TENOFOVIR DISOPROXIL FUMARATE
     Indication: HIV INFECTION
     Dosage: 1 DF
     Route: 064
     Dates: start: 20180521
  3. DOLUTEGRAVIR [Suspect]
     Active Substance: DOLUTEGRAVIR
     Indication: HIV INFECTION
     Dosage: 1 DF
     Route: 064
     Dates: start: 20180511, end: 20180521
  4. ELVITEGRAVIR/COBICISTAT/EMTRICITABINE/TENOFOVIR ALAFENAMIDE [Suspect]
     Active Substance: COBICISTAT\ELVITEGRAVIR\EMTRICITABINE\TENOFOVIR
     Indication: HIV INFECTION
     Dosage: 1 DF
     Route: 064
     Dates: end: 20180511
  5. FOLIC ACID. [Suspect]
     Active Substance: FOLIC ACID
     Indication: PRODUCT USED FOR UNKNOWN INDICATION
     Dosage: UNK; 2ND AND 3RD TRIMESTER
     Route: 064

REACTIONS (7)
  - Nervous system disorder [Unknown]
  - Polydactyly [Unknown]
  - Hand deformity [Unknown]
  - Cystic lymphangioma [Unknown]
  - Death [Fatal]
  - Hydronephrosis [Unknown]
  - Trisomy 13 [Unknown]

NARRATIVE: CASE EVENT DATE: 2018
